FAERS Safety Report 5292588-6 (Version None)
Quarter: 2007Q2

REPORT INFORMATION
  Report Type: 
  Country: None (occurrence: None)
  Receive Date: 20070404
  Receipt Date: 20070321
  Transmission Date: 20071010
  Serious: Yes (Other)
  Sender: FDA-Public Use
  Company Number: PAR_1457_2007

PATIENT
  Age: 48 Year
  Sex: Male

DRUGS (3)
  1. CABERGOLINE [Suspect]
     Indication: PROLACTINOMA
     Dosage: 0.5 MG 2XWK PO
     Route: 048
  2. CABERGOLINE [Suspect]
     Indication: PROLACTINOMA
     Dosage: 0.125 MG 2XWK PO
     Route: 048
  3. CABERGOLINE [Suspect]
     Dosage: 0.5 MG 2XWK PO
     Route: 048

REACTIONS (7)
  - BLOOD PROLACTIN INCREASED [None]
  - HEADACHE [None]
  - INTRACRANIAL HYPOTENSION [None]
  - NAUSEA [None]
  - PARANASAL SINUS HYPERSECRETION [None]
  - REFUSAL OF TREATMENT BY PATIENT [None]
  - RHINORRHOEA [None]
